FAERS Safety Report 10759606 (Version 19)
Quarter: 2016Q4

REPORT INFORMATION
  Report Type: Spontaneous
  Country: US (occurrence: US)
  Receive Date: 20150203
  Receipt Date: 20161116
  Transmission Date: 20170206
  Serious: Yes (Hospitalization)
  Sender: FDA-Public Use
  Company Number: US-ACTELION-A-US2015-111878

PATIENT
  Age: 55 Year
  Sex: Female

DRUGS (8)
  1. GABAPENTIN. [Concomitant]
     Active Substance: GABAPENTIN
  2. VELETRI [Suspect]
     Active Substance: EPOPROSTENOL
     Indication: PULMONARY HYPERTENSION
     Dosage: 36 NG/KG PER MIN
     Route: 042
     Dates: start: 20140530, end: 201611
  3. VELETRI [Suspect]
     Active Substance: EPOPROSTENOL
     Dosage: UNK
     Route: 042
  4. VELETRI [Suspect]
     Active Substance: EPOPROSTENOL
     Dosage: UNK
     Route: 042
  5. VELETRI [Suspect]
     Active Substance: EPOPROSTENOL
     Dosage: UNK
     Route: 042
  6. OPSUMIT [Suspect]
     Active Substance: MACITENTAN
     Dosage: 10 MG, QD
     Route: 048
  7. ADCIRCA [Concomitant]
     Active Substance: TADALAFIL
  8. OPSUMIT [Suspect]
     Active Substance: MACITENTAN
     Indication: PULMONARY HYPERTENSION
     Dosage: 10 MG, QD
     Route: 048
     Dates: start: 20140721

REACTIONS (37)
  - Transfusion [Unknown]
  - Polypectomy [Unknown]
  - Occult blood positive [Unknown]
  - Pruritus [Unknown]
  - Cardiac failure high output [Unknown]
  - Pneumonia [Unknown]
  - Condition aggravated [Unknown]
  - Weight decreased [Unknown]
  - Biopsy bone marrow [Unknown]
  - Confusional state [Unknown]
  - Hypoxia [Unknown]
  - Ear disorder [Unknown]
  - Pain in jaw [Unknown]
  - Malaise [Unknown]
  - Skin irritation [Recovered/Resolved]
  - Hernia [Unknown]
  - Anaemia [Unknown]
  - Malnutrition [Unknown]
  - Haemorrhage [Unknown]
  - Arthralgia [Unknown]
  - Catheter site swelling [Unknown]
  - Skin infection [Unknown]
  - Rash [Unknown]
  - Myalgia [Unknown]
  - Stress cardiomyopathy [Unknown]
  - Hypotension [Unknown]
  - Hypersensitivity [Unknown]
  - Pain in extremity [Unknown]
  - Hypovolaemic shock [Unknown]
  - Mental status changes [Unknown]
  - Gastrointestinal haemorrhage [Unknown]
  - Scleroderma [Unknown]
  - Abdominal discomfort [Unknown]
  - Gastritis [Unknown]
  - Abdominal pain [Unknown]
  - Mineral supplementation [Unknown]
  - Decreased appetite [Unknown]
